APPROVED DRUG PRODUCT: PROPAFENONE HYDROCHLORIDE
Active Ingredient: PROPAFENONE HYDROCHLORIDE
Strength: 225MG
Dosage Form/Route: CAPSULE, EXTENDED RELEASE;ORAL
Application: A212744 | Product #001 | TE Code: AB
Applicant: UPSHER SMITH LABORATORIES LLC
Approved: Jun 25, 2020 | RLD: No | RS: No | Type: RX